FAERS Safety Report 6730337-2 (Version None)
Quarter: 2010Q2

REPORT INFORMATION
  Report Type: 
  Country: None (occurrence: None)
  Receive Date: 20100512
  Receipt Date: 20100222
  Transmission Date: 20101027
  Serious: No
  Sender: FDA-Public Use
  Company Number: 1000011988

PATIENT
  Age: 46 Year
  Sex: Male

DRUGS (11)
  1. SAVELLA [Suspect]
     Indication: FIBROMYALGIA
     Dosage: SEE IMAGE
     Route: 048
     Dates: start: 20090801, end: 20090801
  2. SAVELLA [Suspect]
     Indication: FIBROMYALGIA
     Dosage: SEE IMAGE
     Route: 048
     Dates: start: 20090801, end: 20090801
  3. SAVELLA [Suspect]
     Indication: FIBROMYALGIA
     Dosage: SEE IMAGE
     Route: 048
     Dates: start: 20090801, end: 20090801
  4. SAVELLA [Suspect]
     Indication: FIBROMYALGIA
     Dosage: SEE IMAGE
     Route: 048
     Dates: start: 20090801
  5. IBUPROFEN [Concomitant]
  6. NORCO [Concomitant]
  7. TEMAZEPAM [Concomitant]
  8. TRAZODONE HCL [Concomitant]
  9. CLONAZEPAM [Concomitant]
  10. PROZAC [Concomitant]
  11. SIMVASTATIN [Concomitant]

REACTIONS (3)
  - CONSTIPATION [None]
  - HEADACHE [None]
  - MUSCLE TIGHTNESS [None]
